FAERS Safety Report 10507896 (Version 1)
Quarter: 2014Q4

REPORT INFORMATION
  Report Type: Report from Study
  Country: US (occurrence: US)
  Receive Date: 20141009
  Receipt Date: 20141009
  Transmission Date: 20150528
  Serious: Yes (Hospitalization, Other)
  Sender: FDA-Public Use
  Company Number: PHHY2014US130656

PATIENT
  Sex: Male
  Weight: 88 kg

DRUGS (3)
  1. BASILIXIMAB [Suspect]
     Active Substance: BASILIXIMAB
     Dosage: 20 MG (DAILY)
     Route: 042
     Dates: start: 20131221
  2. BASILIXIMAB [Suspect]
     Active Substance: BASILIXIMAB
     Indication: RENAL TRANSPLANT
     Dosage: 20 MG (DAILY)
     Route: 042
     Dates: start: 20131218
  3. TACROLIMUS. [Suspect]
     Active Substance: TACROLIMUS
     Indication: RENAL TRANSPLANT
     Dosage: 3 MG (2MG AM AND 1MG IN PM) DAILY
     Route: 048
     Dates: start: 20131219

REACTIONS (3)
  - Wound [Not Recovered/Not Resolved]
  - Necrosis [Unknown]
  - Rash [Unknown]
